FAERS Safety Report 15835896 (Version 3)
Quarter: 2019Q1

REPORT INFORMATION
  Report Type: Report from Study
  Country: US (occurrence: US)
  Receive Date: 20190117
  Receipt Date: 20190123
  Transmission Date: 20190417
  Serious: Yes (Hospitalization)
  Sender: FDA-Public Use
  Company Number: US-GILEAD-2019-0384286

PATIENT
  Age: 43 Year
  Sex: Female
  Weight: 69.39 kg

DRUGS (3)
  1. AMBRISENTAN [Suspect]
     Active Substance: AMBRISENTAN
     Indication: PULMONARY HYPERTENSION
     Dosage: 5 MG, QD
     Route: 065
     Dates: start: 20190103
  2. REMODULIN [Suspect]
     Active Substance: TREPROSTINIL
     Indication: PULMONARY HYPERTENSION
     Dosage: 50 NG, Q1MINUTE
     Route: 042
     Dates: start: 20180322
  3. SILDENAFIL CITRATE. [Concomitant]
     Active Substance: SILDENAFIL CITRATE

REACTIONS (6)
  - Polyuria [Unknown]
  - Localised oedema [Unknown]
  - Peripheral swelling [Unknown]
  - Swelling [Unknown]
  - Dehydration [Unknown]
  - Vertigo [Unknown]
